FAERS Safety Report 13644868 (Version 1)
Quarter: 2017Q2

REPORT INFORMATION
  Report Type: Spontaneous
  Country: US (occurrence: US)
  Receive Date: 20170612
  Receipt Date: 20170612
  Transmission Date: 20170830
  Serious: Yes (Other)
  Sender: FDA-Public Use
  Company Number: US-ROCHE-1310347

PATIENT
  Age: 78 Year
  Sex: Female
  Weight: 66.3 kg

DRUGS (10)
  1. FISH OIL [Concomitant]
     Active Substance: FISH OIL
  2. XELODA [Suspect]
     Active Substance: CAPECITABINE
     Route: 048
     Dates: start: 20130803
  3. METFORMIN [Concomitant]
     Active Substance: METFORMIN HYDROCHLORIDE
     Route: 065
  4. JANUVIA [Concomitant]
     Active Substance: SITAGLIPTIN PHOSPHATE
  5. LEVOTHYROXINE. [Concomitant]
     Active Substance: LEVOTHYROXINE
  6. PRAVASTATIN. [Concomitant]
     Active Substance: PRAVASTATIN
  7. XELODA [Suspect]
     Active Substance: CAPECITABINE
     Indication: COLON CANCER
     Dosage: FOR 14 DAYS, SHE WAS USING THE 500 AND THE 150 MG TABLETS.
     Route: 065
     Dates: start: 20130801
  8. XELODA [Suspect]
     Active Substance: CAPECITABINE
     Dosage: 14 DAYS ON 7 DAYS OFF
     Route: 065
     Dates: start: 20130802
  9. GLIPIZIDE. [Concomitant]
     Active Substance: GLIPIZIDE
  10. LISINOPRIL. [Concomitant]
     Active Substance: LISINOPRIL

REACTIONS (4)
  - Dyspnoea [Recovered/Resolved]
  - Skin fissures [Unknown]
  - Fatigue [Recovered/Resolved]
  - Neuropathy peripheral [Unknown]

NARRATIVE: CASE EVENT DATE: 20131104
